FAERS Safety Report 18099593 (Version 1)
Quarter: 2020Q3

REPORT INFORMATION
  Report Type: Other
  Country: JP (occurrence: JP)
  Receive Date: 20200731
  Receipt Date: 20200731
  Transmission Date: 20201103
  Serious: No
  Sender: FDA-Public Use
  Company Number: JP-B.BRAUN MEDICAL INC.-2088003

PATIENT
  Age: 26 Year
  Sex: Female

DRUGS (2)
  1. POTASSIUM CHLORIDE IN 5% DEXTROSE INJECTIONS USP 0264?7625?00 (NDA 019 [Suspect]
     Active Substance: DEXTROSE\POTASSIUM CHLORIDE
     Route: 048
  2. SODIUM CHLORIDE. [Concomitant]
     Active Substance: SODIUM CHLORIDE

REACTIONS (5)
  - Nausea [None]
  - Electrocardiogram abnormal [None]
  - Agitation [None]
  - Epigastric discomfort [None]
  - Hyperkalaemia [None]
